FAERS Safety Report 4571262-5 (Version None)
Quarter: 2005Q1

REPORT INFORMATION
  Report Type: 
  Country: None (occurrence: None)
  Receive Date: 20050202
  Receipt Date: 20050118
  Transmission Date: 20050727
  Serious: Yes (Other)
  Sender: FDA-Public Use
  Company Number: 140741USA

PATIENT
  Age: 52 Year
  Sex: Male

DRUGS (4)
  1. COPAXONE [Suspect]
     Indication: MULTIPLE SCLEROSIS
     Dosage: 20 MILLIGRAM QD SUBCUTANEOUS
     Route: 058
     Dates: start: 19980427, end: 20041203
  2. AMANTADINE [Concomitant]
  3. IBUPROFEN [Concomitant]
  4. VITAMIN B-12 [Concomitant]

REACTIONS (11)
  - ECCHYMOSIS [None]
  - ERYTHEMA [None]
  - INJECTION SITE HAEMORRHAGE [None]
  - INJECTION SITE NECROSIS [None]
  - PAIN [None]
  - PANNICULITIS [None]
  - SCAR [None]
  - SKIN DISCOLOURATION [None]
  - SKIN NECROSIS [None]
  - TENDERNESS [None]
  - VASCULITIS [None]
